FAERS Safety Report 22592903 (Version 3)
Quarter: 2023Q2

REPORT INFORMATION
  Report Type: Spontaneous
  Country: JP (occurrence: JP)
  Receive Date: 20230613
  Receipt Date: 20230628
  Transmission Date: 20230722
  Serious: Yes (Hospitalization)
  Sender: FDA-Public Use
  Company Number: JP-CHUGAI-2023020497

PATIENT
  Age: 8 Decade
  Sex: Female

DRUGS (3)
  1. ALECENSA [Suspect]
     Active Substance: ALECTINIB HYDROCHLORIDE
     Indication: Non-small cell lung cancer
     Dosage: 300 MILLIGRAM, BID
     Route: 048
     Dates: start: 20220929, end: 20230428
  2. METHYLPREDNISOLONE ACETATE [Suspect]
     Active Substance: METHYLPREDNISOLONE ACETATE
     Indication: Pulmonary toxicity
     Dosage: 1000MG/DAY
     Route: 041
     Dates: start: 20230428, end: 20230430
  3. ELIQUIS [Suspect]
     Active Substance: APIXABAN
     Indication: Pulmonary venous thrombosis
     Dosage: 5 MILLIGRAM, BID
     Route: 048

REACTIONS (2)
  - Pulmonary toxicity [Recovered/Resolved]
  - Diabetes mellitus [Recovering/Resolving]

NARRATIVE: CASE EVENT DATE: 20230428
